FAERS Safety Report 6598850-9 (Version None)
Quarter: 2010Q1

REPORT INFORMATION
  Report Type: 
  Country: None (occurrence: None)
  Receive Date: 20100217
  Receipt Date: 20100122
  Transmission Date: 20100710
  Serious: Yes (Death)
  Sender: FDA-Public Use
  Company Number: AE 2009-091

PATIENT
  Age: 90 Year
  Sex: Male

DRUGS (24)
  1. FAZACLO ODT [Suspect]
     Indication: CEREBROVASCULAR ACCIDENT
     Dosage: 25 MG QHS PO
     Route: 048
     Dates: start: 20090516, end: 20090619
  2. FAZACLO ODT [Suspect]
     Indication: DEMENTIA
     Dosage: 25 MG QHS PO
     Route: 048
     Dates: start: 20090516, end: 20090619
  3. ACETAMINOPHEN SUPP. [Concomitant]
  4. ASPIRIN [Concomitant]
  5. BRIMONIDINE EYE DROPS [Concomitant]
  6. CALGEST [Concomitant]
  7. DIVALPROEX SODIUM [Concomitant]
  8. TRUSOPT [Concomitant]
  9. GLIPIZIDE [Concomitant]
  10. GLUCAGON KIT [Concomitant]
  11. HYDROCODONE [Concomitant]
  12. LEVAQUIN [Concomitant]
  13. KLOR-CON [Concomitant]
  14. LORAZEPAM [Concomitant]
  15. METFORMIN HYDROCHLORIDE [Concomitant]
  16. MOM [Concomitant]
  17. SIMVASTATIN [Concomitant]
  18. SYMBICORT [Concomitant]
  19. TORESMIDE [Concomitant]
  20. TRIPLE ANTIBIOTIC OINT [Concomitant]
  21. MIRTAZAPINE [Concomitant]
  22. OXYTROL [Concomitant]
  23. POLYETHYLENE GLYCOL [Concomitant]
  24. SERTRALINE HCL [Concomitant]

REACTIONS (2)
  - RESPIRATORY DISTRESS [None]
  - UNRESPONSIVE TO STIMULI [None]
